FAERS Safety Report 14195495 (Version 7)
Quarter: 2018Q1

REPORT INFORMATION
  Report Type: Spontaneous
  Country: CN (occurrence: CN)
  Receive Date: 20171116
  Receipt Date: 20180313
  Transmission Date: 20180508
  Serious: Yes (Other)
  Sender: FDA-Public Use
  Company Number: CN-009507513-1708CHN011580

PATIENT
  Age: 34 Month
  Sex: Male
  Weight: 12.1 kg

DRUGS (1)
  1. NOXAFIL [Suspect]
     Active Substance: POSACONAZOLE
     Indication: ANTIFUNGAL PROPHYLAXIS
     Dosage: 48 MG, TID
     Route: 048
     Dates: start: 20170818, end: 20171218

REACTIONS (7)
  - Secondary hypertension [Not Recovered/Not Resolved]
  - Pyrexia [Recovered/Resolved]
  - Hepatic function abnormal [Recovered/Resolved]
  - Cytomegalovirus infection [Unknown]
  - Cough [Recovered/Resolved]
  - Bacterial toxaemia [Recovered/Resolved]
  - Off label use [Unknown]

NARRATIVE: CASE EVENT DATE: 20170818
